FAERS Safety Report 9993366 (Version 1)
Quarter: 2014Q1

REPORT INFORMATION
  Report Type: Report from Study
  Country: US (occurrence: US)
  Receive Date: 20140310
  Receipt Date: 20140310
  Transmission Date: 20141002
  Serious: Yes (Other)
  Sender: FDA-Public Use
  Company Number: PHEH2014US004704

PATIENT
  Sex: Male

DRUGS (14)
  1. TOBI [Suspect]
     Indication: CHRONIC RESPIRATORY FAILURE
     Dosage: 1 DF, BID
     Route: 055
  2. TOBI [Suspect]
     Indication: PSEUDOMONAS INFECTION
  3. HYDROCHLOROTHIAZIDE [Concomitant]
     Dosage: UNK UKN, UNK
  4. ALBUTEROL [Concomitant]
     Dosage: UNK UKN, UNK
  5. XOPENEX [Concomitant]
     Dosage: UNK UKN, UNK
  6. HYPERTONIC SALINE SOLUTION [Concomitant]
     Dosage: UNK UKN, UNK
  7. KEPPRA [Concomitant]
     Dosage: UNK UKN, UNK
  8. LAMICTAL [Concomitant]
     Dosage: UNK UKN, UNK
  9. ANDROGEL [Concomitant]
     Dosage: UNK UKN, UNK
  10. SYNTHROID [Concomitant]
     Dosage: UNK UKN, UNK
  11. BACLOFEN [Concomitant]
     Dosage: UNK UKN, UNK
  12. NUPRA [Concomitant]
     Dosage: UNK UKN, UNK
  13. AMANTADINE [Concomitant]
     Dosage: UNK UKN, UNK
  14. TRAZODONE [Concomitant]
     Dosage: UNK UKN, UNK

REACTIONS (4)
  - Convulsion [Unknown]
  - Strabismus [Unknown]
  - Muscle twitching [Unknown]
  - Tinnitus [Unknown]
